FAERS Safety Report 7383305-4 (Version None)
Quarter: 2011Q1

REPORT INFORMATION
  Report Type: 
  Country: None (occurrence: None)
  Receive Date: 20110325
  Receipt Date: 20110325
  Transmission Date: 20110831
  Serious: Yes (Hospitalization)
  Sender: FDA-Public Use
  Company Number: None

PATIENT
  Age: 66 Year
  Sex: Female
  Weight: 90 kg

DRUGS (28)
  1. ZOFRAN [Concomitant]
  2. ALPRAZOLAM [Concomitant]
  3. SEROQUEL [Concomitant]
  4. APIDRA [Concomitant]
  5. METOCLOPRAMIDE [Concomitant]
  6. MECLIZINE [Concomitant]
  7. PROSTAT [Concomitant]
  8. BISACODYL [Concomitant]
  9. ALPRAZOLAM [Concomitant]
  10. HEPARIN [Concomitant]
  11. LEVOTHYROXINE [Concomitant]
  12. LISINOPRIL [Concomitant]
  13. BACTRIM DS [Suspect]
     Indication: URINARY TRACT INFECTION
     Dosage: 1 TAB BID X 7 DAYS PO  RECENT
     Route: 048
  14. VENLAFAXINE HCL [Concomitant]
  15. ALBUTEROL [Concomitant]
  16. APAP TAB [Concomitant]
  17. CARVEDILOL [Concomitant]
  18. LANSOPRAZOLE [Concomitant]
  19. SEROQUEL [Concomitant]
  20. PROMETHAZINE [Concomitant]
  21. MORPHINE [Concomitant]
  22. CHLORHEXIDINE GLUCONATE [Concomitant]
  23. LANTUS [Concomitant]
  24. M.V.I. [Concomitant]
  25. GLUCERNA [Concomitant]
  26. MIRALAX [Concomitant]
  27. LIDOCAINE [Concomitant]
  28. OXYCODONE [Concomitant]

REACTIONS (2)
  - RENAL FAILURE ACUTE [None]
  - HYPERKALAEMIA [None]
